FAERS Safety Report 4479248-6 (Version None)
Quarter: 2004Q4

REPORT INFORMATION
  Report Type: 
  Country: None (occurrence: None)
  Receive Date: 20041019
  Receipt Date: 20041019
  Transmission Date: 20050328
  Serious: Yes (Hospitalization)
  Sender: FDA-Public Use
  Company Number: None

PATIENT
  Age: 86 Year
  Sex: Female
  Weight: 53.978 kg

DRUGS (2)
  1. MALARONE [Suspect]
     Indication: MALARIA PROPHYLAXIS
     Dates: start: 20040401, end: 20040414
  2. ATORVASTATIN CALCIUM [Suspect]
     Indication: BLOOD CHOLESTEROL INCREASED

REACTIONS (2)
  - HEPATITIS ACUTE [None]
  - LIVER TRANSPLANT [None]
